FAERS Safety Report 20567521 (Version 1)
Quarter: 2022Q1

REPORT INFORMATION
  Report Type: Report from Study
  Country: DE (occurrence: None)
  Receive Date: 20220308
  Receipt Date: 20220308
  Transmission Date: 20220424
  Serious: Yes (Death)
  Sender: FDA-Public Use
  Company Number: DE-ROCHE-3028830

PATIENT
  Age: 45 Year
  Sex: Female
  Weight: 110 kg

DRUGS (21)
  1. OCRELIZUMAB [Suspect]
     Active Substance: OCRELIZUMAB
     Indication: Relapsing-remitting multiple sclerosis
     Dosage: DATE OF MOST RECENT DOSE OF OCRELIZUMAB PRIOR TO THIS EVENT ONSET ON 04/OCT/2021
     Route: 042
     Dates: start: 20190509
  2. METHYLPREDNISOLONE [Suspect]
     Active Substance: METHYLPREDNISOLONE
     Indication: Relapsing-remitting multiple sclerosis
     Dosage: DOSE (100 MG) OF LAST METHYLPREDNISOLONE ADMINISTERED PRIOR TO THIS EVENT ONSET.
     Route: 042
     Dates: start: 20190509
  3. ASPIRIN COMPLEX (GERMANY) [Concomitant]
     Route: 048
     Dates: start: 20210916, end: 20210925
  4. COMIRNATY [Concomitant]
     Active Substance: TOZINAMERAN
     Indication: Prophylaxis
     Route: 030
     Dates: start: 20210621, end: 20210621
  5. CORTISONE [Concomitant]
     Active Substance: CORTISONE
     Route: 042
     Dates: start: 20190312, end: 20190316
  6. ASTRAZENECA COVID-19 VACCINE [Concomitant]
     Active Substance: AZD-1222
     Indication: Prophylaxis
     Route: 030
     Dates: start: 20210309, end: 20210309
  7. DESOFEMONO [Concomitant]
     Indication: Prophylaxis
     Route: 048
     Dates: start: 20190410
  8. ESCITALOPRAM [Concomitant]
     Active Substance: ESCITALOPRAM OXALATE
     Route: 048
     Dates: start: 20191102, end: 20191208
  9. ESCITALOPRAM [Concomitant]
     Active Substance: ESCITALOPRAM OXALATE
     Route: 048
     Dates: start: 20191209, end: 20200903
  10. IPV MERIEUX [Concomitant]
     Active Substance: POLIOMYELITIS VACCINE
     Indication: Prophylaxis
     Dates: start: 20190328, end: 20190328
  11. LAVENDER OIL [Concomitant]
     Active Substance: LAVENDER OIL
     Route: 048
  12. LEVOTHYROXINE [Concomitant]
     Active Substance: LEVOTHYROXINE
     Route: 048
  13. MOMETASONE FUROATE [Concomitant]
     Active Substance: MOMETASONE FUROATE
     Dosage: 1 PUFF
     Route: 045
     Dates: start: 20200210, end: 20200213
  14. PANTOPRAZOLE [Concomitant]
     Active Substance: PANTOPRAZOLE
     Route: 048
     Dates: start: 20190311, end: 20190318
  15. PNEUMOVAX 23 [Concomitant]
     Active Substance: PNEUMOCOCCAL VACCINE, POLYVALENT 23
     Indication: Prophylaxis
     Dates: start: 20190328, end: 20190328
  16. ALBUTEROL [Concomitant]
     Active Substance: ALBUTEROL
     Dates: start: 20190613, end: 20190625
  17. DIETARY SUPPLEMENT\HERBALS [Concomitant]
     Active Substance: DIETARY SUPPLEMENT\HERBALS
     Route: 048
     Dates: start: 20210917, end: 20210925
  18. DIETARY SUPPLEMENT\HERBALS [Concomitant]
     Active Substance: DIETARY SUPPLEMENT\HERBALS
     Route: 048
     Dates: start: 20200127, end: 20200203
  19. SOLEDUM FORTE [Concomitant]
     Route: 048
     Dates: start: 20190613, end: 20190615
  20. TORSEMIDE [Concomitant]
     Active Substance: TORSEMIDE
     Route: 048
     Dates: start: 20190809, end: 20190822
  21. PARACODIN [Concomitant]
     Route: 048
     Dates: start: 20220208, end: 20220213

REACTIONS (1)
  - COVID-19 [Fatal]

NARRATIVE: CASE EVENT DATE: 20220202
